FAERS Safety Report 13084097 (Version 1)
Quarter: 2017Q1

REPORT INFORMATION
  Report Type: Report from Study
  Country: US (occurrence: US)
  Receive Date: 20170104
  Receipt Date: 20170104
  Transmission Date: 20170428
  Serious: No
  Sender: FDA-Public Use
  Company Number: US-009507513-1612USA009204

PATIENT
  Sex: Male

DRUGS (2)
  1. EMEND [Suspect]
     Active Substance: APREPITANT
     Indication: VOMITING
  2. EMEND [Suspect]
     Active Substance: APREPITANT
     Indication: NAUSEA
     Route: 042

REACTIONS (2)
  - Adverse event [Unknown]
  - Product use issue [Unknown]
